FAERS Safety Report 7291753-6 (Version None)
Quarter: 2011Q1

REPORT INFORMATION
  Report Type: 
  Country: None (occurrence: None)
  Receive Date: 20110202
  Receipt Date: 20110117
  Transmission Date: 20110831
  Serious: Yes (Death)
  Sender: FDA-Public Use
  Company Number: CTI_01271_2010

PATIENT
  Sex: Female
  Weight: 87.5442 kg

DRUGS (18)
  1. ZYFLO [Suspect]
     Indication: PRODUCT USED FOR UNKNOWN INDICATION
     Dosage: 600 MG QID, TWO IN THE MORNING AND TWO AT NIGHT
  2. GLUCOPHAGE [Concomitant]
  3. LASIX [Concomitant]
  4. PULMICORT [Concomitant]
  5. TRAZODONE HCL [Concomitant]
  6. AMBIEN [Concomitant]
  7. XOLAIR [Concomitant]
  8. PRILOSEC [Concomitant]
  9. ALBUTEROL SULFATE AND IPRATROPIUM BROMIDE [Concomitant]
  10. WELLBUTRIN [Concomitant]
  11. SINGULAIR [Concomitant]
  12. PREDNISONE [Concomitant]
  13. METOPROLOL SUCCINATE [Concomitant]
  14. ALPRAZOLAM [Concomitant]
  15. DIOVAN HCT [Concomitant]
  16. REQUIP [Concomitant]
  17. ALBUTEROL [Concomitant]
  18. SYMBICORT [Concomitant]

REACTIONS (3)
  - MYOCARDIAL INFARCTION [None]
  - VENTRICULAR HYPOKINESIA [None]
  - DILATATION VENTRICULAR [None]
